FAERS Safety Report 9455781 (Version 2)
Quarter: 2013Q3

REPORT INFORMATION
  Report Type: Spontaneous
  Country: JP (occurrence: JP)
  Receive Date: 20130813
  Receipt Date: 20130819
  Transmission Date: 20140515
  Serious: No
  Sender: FDA-Public Use
  Company Number: JP-SANOFI-AVENTIS-2013SA080372

PATIENT
  Age: 75 Year
  Sex: Male

DRUGS (1)
  1. DELLEGRA [Suspect]
     Indication: RHINITIS PERENNIAL
     Route: 048
     Dates: start: 20130426

REACTIONS (1)
  - Dysuria [Recovered/Resolved]
